FAERS Safety Report 9366611 (Version 1)
Quarter: 2013Q2

REPORT INFORMATION
  Report Type: Spontaneous
  Country: US (occurrence: US)
  Receive Date: 20130625
  Receipt Date: 20130625
  Transmission Date: 20140414
  Serious: Yes (Other)
  Sender: FDA-Public Use
  Company Number: US-JNJFOC-20130610410

PATIENT
  Sex: Male
  Weight: 95.26 kg

DRUGS (9)
  1. XARELTO [Suspect]
     Indication: CEREBROVASCULAR ACCIDENT PROPHYLAXIS
     Route: 048
     Dates: start: 20130523
  2. XARELTO [Suspect]
     Indication: ATRIAL FIBRILLATION
     Route: 048
     Dates: start: 20130523
  3. DIGOXIN [Concomitant]
     Indication: HEART RATE DECREASED
     Route: 048
  4. DIGOXIN [Concomitant]
     Indication: ATRIAL FIBRILLATION
     Route: 048
  5. ATENOLOL [Concomitant]
     Indication: HEART RATE DECREASED
     Route: 048
  6. ATENOLOL [Concomitant]
     Indication: ATRIAL FIBRILLATION
     Route: 048
  7. FLOMAX [Concomitant]
     Indication: BENIGN PROSTATIC HYPERPLASIA
     Route: 048
  8. LIPITOR [Concomitant]
     Indication: BLOOD CHOLESTEROL INCREASED
     Route: 048
  9. FLECAINIDE [Concomitant]
     Indication: ATRIAL FIBRILLATION
     Route: 065
     Dates: end: 2012

REACTIONS (2)
  - Prostatic specific antigen increased [Recovered/Resolved]
  - Prostatic mass [Not Recovered/Not Resolved]
